FAERS Safety Report 9596874 (Version 1)
Quarter: 2013Q4

REPORT INFORMATION
  Report Type: Spontaneous
  Country: FR (occurrence: FR)
  Receive Date: 20131004
  Receipt Date: 20131004
  Transmission Date: 20140711
  Serious: Yes (Hospitalization, Other)
  Sender: FDA-Public Use
  Company Number: FR-ACTAVIS-2013-17289

PATIENT
  Age: 31 Year
  Sex: Female

DRUGS (8)
  1. CLONAZEPAM (UNKNOWN) [Suspect]
     Indication: AGITATION
     Dosage: 1 MG, UNKNOWN
     Route: 042
  2. CLONAZEPAM (UNKNOWN) [Suspect]
     Indication: HALLUCINATION
  3. LOXAPINE (WATSON LABORATORIES) [Suspect]
     Indication: AGITATION
     Dosage: 50 MG, (3*50 MG)
     Route: 030
  4. LOXAPINE (WATSON LABORATORIES) [Suspect]
     Indication: HALLUCINATION
  5. CLORAZEPATE DIPOTASSIUM [Suspect]
     Indication: AGITATION
     Dosage: 50 MG, UNKNOWN
     Route: 042
  6. CLORAZEPATE DIPOTASSIUM [Suspect]
     Indication: HALLUCINATION
  7. HALOPERIDOL (UNKNOWN) [Suspect]
     Indication: AGITATION
     Dosage: 5 MG, UNKNOWN
     Route: 042
  8. HALOPERIDOL (UNKNOWN) [Suspect]
     Indication: HALLUCINATION

REACTIONS (1)
  - Neuroleptic malignant syndrome [Recovered/Resolved]
